FAERS Safety Report 11639099 (Version 2)
Quarter: 2015Q4

REPORT INFORMATION
  Report Type: Report from Study
  Country: US (occurrence: US)
  Receive Date: 20151019
  Receipt Date: 20151120
  Transmission Date: 20160304
  Serious: Yes (Hospitalization, Other)
  Sender: FDA-Public Use
  Company Number: US-AMGEN-USASL2015093763

PATIENT
  Age: 70 Year
  Sex: Female

DRUGS (1)
  1. KYPROLIS [Suspect]
     Active Substance: CARFILZOMIB
     Indication: PLASMA CELL MYELOMA
     Dosage: 48 MG, UNK
     Route: 065
     Dates: start: 201504, end: 20150821

REACTIONS (3)
  - Cardiac disorder [Unknown]
  - Drug intolerance [Unknown]
  - Dyspnoea [Unknown]

NARRATIVE: CASE EVENT DATE: 2015
